FAERS Safety Report 8949432 (Version 1)
Quarter: 2012Q4

REPORT INFORMATION
  Report Type: 
  Country: FR (occurrence: FR)
  Receive Date: 20121206
  Receipt Date: 20121206
  Transmission Date: 20130627
  Serious: Yes (Hospitalization, Other)
  Sender: FDA-Public Use
  Company Number: FR-ELI_LILLY_AND_COMPANY-FR201211007593

PATIENT
  Age: 80 None
  Sex: Female

DRUGS (13)
  1. ZYPREXA [Suspect]
     Dosage: 1 DF, unknown
     Dates: start: 200212, end: 200401
  2. ZYPREXA [Suspect]
     Dosage: 1 DF, unknown
     Dates: start: 200403, end: 201110
  3. ZYPREXA [Suspect]
     Dosage: 5 mg, qd
     Dates: start: 20120404
  4. ZYPREXA [Suspect]
     Dosage: 10 mg, qd
     Dates: end: 20120730
  5. ZYPREXA [Suspect]
     Dosage: 5 mg, qd
     Dates: start: 20120731, end: 20120802
  6. EBIXA [Concomitant]
     Dosage: 1 DF, unknown
     Dates: start: 2010, end: 20120802
  7. REMINYL [Concomitant]
     Dosage: 16 mg, qd
     Dates: start: 2010, end: 20120802
  8. IXEL [Concomitant]
     Dosage: 50 mg, bid
     Dates: start: 2010, end: 20120802
  9. DIAMICRON [Concomitant]
     Dosage: 1 DF, unknown
  10. ALPRAZOLAM [Concomitant]
     Dosage: 1 DF, unknown
  11. LEVOTHYROXIN [Concomitant]
     Dosage: 1 DF, unknown
  12. MOVICOL                            /01625101/ [Concomitant]
     Dosage: 1 DF, unknown
  13. TAHOR [Concomitant]
     Dosage: 1 DF, unknown
     Dates: end: 20120731

REACTIONS (7)
  - Delirium [Unknown]
  - General physical health deterioration [Recovering/Resolving]
  - Dehydration [Recovering/Resolving]
  - Pyrexia [Recovering/Resolving]
  - Rhabdomyolysis [Recovering/Resolving]
  - Urinary tract infection [Unknown]
  - Weight increased [Unknown]
